FAERS Safety Report 9700131 (Version 1)
Quarter: 2013Q4

REPORT INFORMATION
  Report Type: Spontaneous
  Country: CA (occurrence: CA)
  Receive Date: 20131121
  Receipt Date: 20131121
  Transmission Date: 20140711
  Serious: Yes (Death, Hospitalization)
  Sender: FDA-Public Use
  Company Number: CA-AMGEN-CANSP2013081012

PATIENT
  Age: 51 Year
  Sex: Female

DRUGS (1)
  1. SENSIPAR [Suspect]
     Indication: NEPHROPATHY
     Dosage: 30 MG, UNK
     Route: 065
     Dates: start: 20110526

REACTIONS (2)
  - Death [Fatal]
  - Hospitalisation [Unknown]
